FAERS Safety Report 12283750 (Version 1)
Quarter: 2016Q2

REPORT INFORMATION
  Report Type: Spontaneous
  Country: US (occurrence: US)
  Receive Date: 20160419
  Receipt Date: 20160419
  Transmission Date: 20160815
  Serious: No
  Sender: FDA-Public Use
  Company Number: US-BANPHARM-20154189

PATIENT
  Age: 82 Year
  Sex: Male
  Weight: 92.99 kg

DRUGS (4)
  1. ALEVE [Suspect]
     Active Substance: NAPROXEN SODIUM
     Indication: PAIN
     Dosage: 2 DF, IN THE MORNING, 1 DF, 8 HRS LATER,
     Route: 048
     Dates: start: 20150828
  2. COSTO BRAND 81 MG ASPIRIN [Concomitant]
  3. PRILOSEC 20 MG [Concomitant]
  4. OXYBUTININ ER 10 MG [Concomitant]

REACTIONS (2)
  - Pollakiuria [Not Recovered/Not Resolved]
  - Pollakiuria [Not Recovered/Not Resolved]

NARRATIVE: CASE EVENT DATE: 20150829
